FAERS Safety Report 8169921-0 (Version None)
Quarter: 2012Q1

REPORT INFORMATION
  Report Type: 
  Country: None (occurrence: None)
  Receive Date: 20120228
  Receipt Date: 20120228
  Transmission Date: 20120608
  Serious: Yes (Other)
  Sender: FDA-Public Use
  Company Number: None

PATIENT
  Age: 26 Year
  Sex: Female
  Weight: 58.967 kg

DRUGS (1)
  1. AVELOX [Suspect]
     Indication: SINUSITIS
     Dates: start: 20120208, end: 20120208

REACTIONS (11)
  - ANXIETY [None]
  - SYNCOPE [None]
  - VOMITING [None]
  - TREMOR [None]
  - ARTHRALGIA [None]
  - DISORIENTATION [None]
  - INSOMNIA [None]
  - SENSATION OF HEAVINESS [None]
  - CONFUSIONAL STATE [None]
  - MUSCLE SPASMS [None]
  - DEPERSONALISATION [None]
